FAERS Safety Report 24045856 (Version 1)
Quarter: 2024Q3

REPORT INFORMATION
  Report Type: Spontaneous
  Country: US (occurrence: US)
  Receive Date: 20240703
  Receipt Date: 20240703
  Transmission Date: 20241016
  Serious: Yes (Hospitalization, Other)
  Sender: GLENMARK
  Company Number: US-MLMSERVICE-20240613-PI098302-00232-1

PATIENT

DRUGS (2)
  1. TACROLIMUS [Suspect]
     Active Substance: TACROLIMUS
     Indication: Immunosuppressant drug therapy
     Dosage: UNK
     Route: 065
  2. MYCOPHENOLIC ACID [Suspect]
     Active Substance: MYCOPHENOLIC ACID
     Indication: Immunosuppressant drug therapy
     Route: 065

REACTIONS (3)
  - Organising pneumonia [Recovering/Resolving]
  - Nocardiosis [Recovering/Resolving]
  - Enterobacter infection [Recovering/Resolving]
